FAERS Safety Report 5465402-3 (Version None)
Quarter: 2007Q3

REPORT INFORMATION
  Report Type: 
  Country: None (occurrence: None)
  Receive Date: 20070920
  Receipt Date: 20070920
  Transmission Date: 20080115
  Serious: Yes (Hospitalization)
  Sender: FDA-Public Use
  Company Number: None

PATIENT
  Age: 73 Year
  Sex: Male

DRUGS (1)
  1. CISPLATIN [Suspect]
     Indication: LUNG NEOPLASM MALIGNANT
     Dosage: 150MG ONCE IV
     Route: 042
     Dates: start: 20070828, end: 20070828

REACTIONS (7)
  - DIARRHOEA [None]
  - ELECTROCARDIOGRAM T WAVE PEAKED [None]
  - HYPERKALAEMIA [None]
  - HYPOXIA [None]
  - NEPHROPATHY [None]
  - NEPHROPATHY TOXIC [None]
  - RENAL FAILURE ACUTE [None]
